FAERS Safety Report 5355159-9 (Version None)
Quarter: 2007Q2

REPORT INFORMATION
  Report Type: 
  Country: None (occurrence: None)
  Receive Date: 20070529
  Receipt Date: 20060530
  Transmission Date: 20071010
  Serious: Yes (Other)
  Sender: FDA-Public Use
  Company Number: 2006-04-0042

PATIENT
  Sex: Female

DRUGS (1)
  1. NITRO-DUR [Suspect]
     Indication: ANGINA UNSTABLE
     Dosage: TDER
     Route: 062

REACTIONS (3)
  - ANGINA PECTORIS [None]
  - APPLICATION SITE IRRITATION [None]
  - ERYTHEMA [None]
